FAERS Safety Report 16705443 (Version 7)
Quarter: 2019Q4

REPORT INFORMATION
  Report Type: Spontaneous
  Country: DE (occurrence: GN)
  Receive Date: 20190815
  Receipt Date: 20191127
  Transmission Date: 20200122
  Serious: Yes (Death, Other)
  Sender: FDA-Public Use
  Company Number: DE-GLAXOSMITHKLINE-DE2019146839

PATIENT
  Age: 60 Year
  Sex: Male

DRUGS (1)
  1. VENTOLINE AEROSOL [Suspect]
     Active Substance: ALBUTEROL
     Indication: DYSPNOEA
     Dosage: 100 ?G, UNK
     Route: 055

REACTIONS (5)
  - Product complaint [Unknown]
  - Tongue discolouration [Not Recovered/Not Resolved]
  - Syncope [Unknown]
  - Suspected counterfeit product [Unknown]
  - Death [Fatal]

NARRATIVE: CASE EVENT DATE: 20180708
